FAERS Safety Report 8542193-0 (Version None)
Quarter: 2012Q3

REPORT INFORMATION
  Report Type: 
  Country: None (occurrence: None)
  Receive Date: 20120726
  Receipt Date: 20111012
  Transmission Date: 20120928
  Serious: No
  Sender: FDA-Public Use
  Company Number: GB-ASTRAZENECA-2011SE61496

PATIENT
  Age: 33 Year
  Sex: Male
  Weight: 154.2 kg

DRUGS (13)
  1. SEROQUEL XR [Suspect]
     Indication: INSOMNIA
     Route: 048
     Dates: start: 20100101
  2. CLONOPIN [Concomitant]
  3. INSULIN [Concomitant]
  4. BENATEPRIAL [Concomitant]
  5. HUMALOG [Concomitant]
  6. TRICOR [Concomitant]
     Indication: BLOOD TRIGLYCERIDES INCREASED
  7. METOPROLOR [Concomitant]
     Dosage: BID
  8. PLONITINE [Concomitant]
  9. VIT B [Concomitant]
     Dosage: BID
  10. AMBIEN [Concomitant]
     Indication: INSOMNIA
  11. HYDROCODONE BITARTRATE AND ACETAMINOPHEN [Concomitant]
     Indication: PAIN
     Dosage: 10/325 MG ,UPTO 8 TABLETS, DAILY
  12. AMLODIPINE [Concomitant]
  13. NEURONPIN [Concomitant]
     Dosage: 5-9 TAB, DAILY

REACTIONS (5)
  - NERVOUSNESS [None]
  - DRUG DOSE OMISSION [None]
  - BLOOD TRIGLYCERIDES INCREASED [None]
  - DRUG PRESCRIBING ERROR [None]
  - INSOMNIA [None]
